FAERS Safety Report 25590993 (Version 2)
Quarter: 2025Q3

REPORT INFORMATION
  Report Type: Spontaneous
  Country: CN (occurrence: CN)
  Receive Date: 20250722
  Receipt Date: 20250729
  Transmission Date: 20251020
  Serious: Yes (Other)
  Sender: PFIZER
  Company Number: CN-PFIZER INC-PV202500086391

PATIENT
  Age: 69 Year
  Sex: Male

DRUGS (5)
  1. AVIBACTAM SODIUM\CEFTAZIDIME [Suspect]
     Active Substance: AVIBACTAM SODIUM\CEFTAZIDIME
     Indication: Anti-infective therapy
     Dosage: 2.5 G, 3X/DAY
     Route: 041
     Dates: start: 20250505
  2. VORICONAZOLE [Suspect]
     Active Substance: VORICONAZOLE
  3. MEROPENEM [Suspect]
     Active Substance: MEROPENEM
     Indication: Anti-infective therapy
     Dates: start: 20250505, end: 20250529
  4. TEICOPLANIN [Suspect]
     Active Substance: TEICOPLANIN
     Indication: Anti-infective therapy
     Dates: start: 20250505
  5. VANCOMYCIN [Concomitant]
     Active Substance: VANCOMYCIN
     Dates: end: 20250505

REACTIONS (5)
  - Haemoglobin decreased [Recovering/Resolving]
  - Platelet count decreased [Recovering/Resolving]
  - Coagulopathy [Recovering/Resolving]
  - Anuria [Unknown]
  - Drug resistance [Unknown]

NARRATIVE: CASE EVENT DATE: 20250101
